FAERS Safety Report 10223053 (Version 2)
Quarter: 2014Q2

REPORT INFORMATION
  Report Type: Report from Study
  Country: US (occurrence: US)
  Receive Date: 20140607
  Receipt Date: 20140613
  Transmission Date: 20141212
  Serious: Yes (Other)
  Sender: FDA-Public Use
  Company Number: PHEH2014US011191

PATIENT
  Age: 49 Year
  Sex: Male

DRUGS (2)
  1. GILENYA [Suspect]
     Indication: MULTIPLE SCLEROSIS
     Dosage: 0.5 MG, QD
     Route: 048
     Dates: start: 20121022
  2. LAMOTRIGINE [Concomitant]
     Dosage: 75 MG, DAILY MORNING

REACTIONS (25)
  - Paranasal cyst [Unknown]
  - Vision blurred [Unknown]
  - Diplopia [Unknown]
  - Ophthalmoplegia [Unknown]
  - Central nervous system lesion [Unknown]
  - Fatigue [Unknown]
  - Dysaesthesia [Unknown]
  - Ejaculation disorder [Unknown]
  - Pain [Unknown]
  - Neck pain [Unknown]
  - Temperature intolerance [Unknown]
  - Weight increased [Unknown]
  - Fall [Unknown]
  - Erectile dysfunction [Unknown]
  - Anorgasmia [Unknown]
  - Musculoskeletal stiffness [Unknown]
  - Drooling [Unknown]
  - Chest pain [Unknown]
  - Abdominal pain [Unknown]
  - Gait disturbance [Unknown]
  - Paraesthesia [Unknown]
  - Urinary incontinence [Unknown]
  - Cystitis [Unknown]
  - Dyspnoea [Unknown]
  - Back pain [Unknown]
